FAERS Safety Report 4466223-0 (Version None)
Quarter: 2004Q4

REPORT INFORMATION
  Report Type: 
  Country: None (occurrence: None)
  Receive Date: 20041005
  Receipt Date: 20040924
  Transmission Date: 20050328
  Serious: Yes (Hospitalization, Other)
  Sender: FDA-Public Use
  Company Number: CA-JNJFOC-20040906399

PATIENT
  Sex: Female
  Weight: 63.5 kg

DRUGS (10)
  1. TOPAMAX [Suspect]
     Route: 049
     Dates: start: 20031203
  2. TOPAMAX [Suspect]
     Route: 049
     Dates: start: 20031203
  3. AMITIPTYLLINE [Concomitant]
     Route: 049
  4. AMITIPTYLLINE [Concomitant]
     Dosage: AT BEDTIME
     Route: 049
  5. MORPHINE [Concomitant]
     Indication: PAIN
     Route: 049
  6. TEGRETOL [Concomitant]
     Indication: PAIN
     Route: 049
  7. HUMULIN 30/70 INSULIN [Concomitant]
     Route: 058
  8. LISINOPRIL [Concomitant]
     Indication: PROPHYLAXIS
     Route: 049
  9. LISINOPRIL [Concomitant]
     Route: 049
  10. FLUOXETINE [Concomitant]
     Indication: DEPRESSION
     Route: 049

REACTIONS (6)
  - DIABETES MELLITUS INADEQUATE CONTROL [None]
  - DIABETIC EYE DISEASE [None]
  - INTRAOCULAR PRESSURE INCREASED [None]
  - POST PROCEDURAL HAEMORRHAGE [None]
  - RETINAL HAEMORRHAGE [None]
  - RETINAL VASCULAR OCCLUSION [None]
